FAERS Safety Report 10382413 (Version 1)
Quarter: 2014Q3

REPORT INFORMATION
  Report Type: Spontaneous
  Country: US (occurrence: None)
  Receive Date: 20140811
  Receipt Date: 20140811
  Transmission Date: 20150326
  Serious: Yes (Other)
  Sender: FDA-Public Use
  Company Number: AUR-APL-2014-08425

PATIENT

DRUGS (1)
  1. LEVOFLOXACIN (LEVOFLOXACIN) UNKNOWN, 1000MG [Suspect]
     Active Substance: LEVOFLOXACIN
     Indication: TUBERCULOSIS

REACTIONS (1)
  - Rash erythematous [None]
